FAERS Safety Report 18823148 (Version 2)
Quarter: 2021Q1

REPORT INFORMATION
  Report Type: Report from Study
  Country: FR (occurrence: FR)
  Receive Date: 20210201
  Receipt Date: 20210312
  Transmission Date: 20210419
  Serious: Yes (Hospitalization)
  Sender: FDA-Public Use
  Company Number: FR-JNJFOC-20210138547

PATIENT
  Age: 87 Year
  Sex: Male

DRUGS (22)
  1. DARATUMUMAB [Suspect]
     Active Substance: DARATUMUMAB
     Route: 058
     Dates: start: 20201231, end: 20201231
  2. DARATUMUMAB [Suspect]
     Active Substance: DARATUMUMAB
     Route: 058
     Dates: start: 20210108, end: 20210108
  3. DEXAMETHASONE. [Suspect]
     Active Substance: DEXAMETHASONE
     Indication: PLASMA CELL MYELOMA
     Route: 048
     Dates: start: 20201218, end: 20210108
  4. MAGNESIUM [Concomitant]
     Active Substance: MAGNESIUM
  5. SERESTA [Concomitant]
     Active Substance: OXAZEPAM
  6. DARATUMUMAB [Suspect]
     Active Substance: DARATUMUMAB
     Indication: PLASMA CELL MYELOMA
     Route: 058
     Dates: start: 20201218
  7. DARATUMUMAB [Suspect]
     Active Substance: DARATUMUMAB
     Route: 058
     Dates: start: 20201224
  8. LENALIDOMIDE [Suspect]
     Active Substance: LENALIDOMIDE
     Indication: PLASMA CELL MYELOMA
     Route: 048
     Dates: start: 20201218, end: 20210106
  9. AMLOR [Concomitant]
     Active Substance: AMLODIPINE BESYLATE
  10. ZOPICLONE [Concomitant]
     Active Substance: ZOPICLONE
  11. FUROSEMIDE. [Concomitant]
     Active Substance: FUROSEMIDE
  12. VALACICLOVIR [Concomitant]
     Active Substance: VALACYCLOVIR HYDROCHLORIDE
  13. PHOSPHORUS [Concomitant]
     Active Substance: PHOSPHORUS
  14. DUROGESIC [Concomitant]
     Active Substance: FENTANYL
     Indication: PAIN
  15. TEMESTA [LORAZEPAM] [Concomitant]
     Active Substance: LORAZEPAM
  16. COVERAM [Concomitant]
     Active Substance: AMLODIPINE\PERINDOPRIL
  17. INNOHEP [Concomitant]
     Active Substance: TINZAPARIN SODIUM
  18. DUPHALAC [Concomitant]
     Active Substance: LACTULOSE
  19. JANUMET [Concomitant]
     Active Substance: METFORMIN HYDROCHLORIDE\SITAGLIPTIN PHOSPHATE
     Indication: HYPERGLYCAEMIA
     Route: 048
     Dates: start: 20210108
  20. ACTRAPID [Concomitant]
     Active Substance: INSULIN HUMAN
     Indication: HYPERGLYCAEMIA
     Route: 058
     Dates: start: 20210108
  21. ATORVASTATIN [Concomitant]
     Active Substance: ATORVASTATIN
  22. METFORMINE [METFORMIN] [Concomitant]
     Active Substance: METFORMIN HYDROCHLORIDE

REACTIONS (1)
  - Pelvic fracture [Not Recovered/Not Resolved]

NARRATIVE: CASE EVENT DATE: 20210122
